FAERS Safety Report 25767794 (Version 1)
Quarter: 2025Q3

REPORT INFORMATION
  Report Type: Spontaneous
  Country: US (occurrence: US)
  Receive Date: 20250905
  Receipt Date: 20250905
  Transmission Date: 20251020
  Serious: No
  Sender: PFIZER
  Company Number: US-PFIZER INC-PV202500107250

PATIENT
  Age: 36 Year
  Sex: Female

DRUGS (2)
  1. LITFULO [Interacting]
     Active Substance: RITLECITINIB TOSYLATE
     Dosage: 50 MG, DAILY
  2. VERZENIO [Interacting]
     Active Substance: ABEMACICLIB

REACTIONS (1)
  - Drug interaction [Unknown]
